FAERS Safety Report 10710822 (Version 2)
Quarter: 2015Q1

REPORT INFORMATION
  Report Type: Spontaneous
  Country: NL (occurrence: None)
  Receive Date: 20150112
  Receipt Date: 20150204
  Transmission Date: 20150721
  Serious: Yes (Other)
  Sender: FDA-Public Use
  Company Number: 2014NL011318

PATIENT
  Age: 74 Year
  Sex: Male

DRUGS (4)
  1. SINTROM (ACENOCOUMAROL) [Concomitant]
     Active Substance: ACENOCOUMAROL
  2. ELIGARD [Suspect]
     Active Substance: LEUPROLIDE ACETATE
     Indication: PROSTATE CANCER
     Dosage: ONCE EVERY 6 MONTHS
     Route: 058
     Dates: start: 20130723, end: 20140715
  3. XATRAL (ALFUZOSIN HYDROCHLORIDE) [Concomitant]
  4. SOTALOL (SOTALOL) [Concomitant]
     Active Substance: SOTALOL

REACTIONS (4)
  - Drug interaction [None]
  - Fatigue [None]
  - Abdominal distension [None]
  - Dyspnoea [None]

NARRATIVE: CASE EVENT DATE: 201412
